FAERS Safety Report 8620168 (Version 4)
Quarter: 2013Q4

REPORT INFORMATION
  Report Type: Spontaneous
  Country: GB (occurrence: GB)
  Receive Date: 20120618
  Receipt Date: 20131108
  Transmission Date: 20140711
  Serious: Yes (Death, Life-Threatening)
  Sender: FDA-Public Use
  Company Number: GB-TEVA-2011004511

PATIENT
  Age: 52 Year
  Sex: Female
  Weight: 95 kg

DRUGS (38)
  1. LEVACT [Suspect]
     Indication: CHRONIC LYMPHOCYTIC LEUKAEMIA
     Dosage: 125 MILLIGRAM DAILY; UID/QD
     Route: 042
     Dates: start: 20110804, end: 20110805
  2. MABTHERA [Suspect]
     Indication: CHRONIC LYMPHOCYTIC LEUKAEMIA
     Dosage: 700 MILLIGRAM DAILY; UID/QD
     Route: 042
     Dates: start: 20110804, end: 20130804
  3. CETRIZINE 10MG [Concomitant]
     Indication: HYPERSENSITIVITY
  4. PROMETHAZINE 25 MG [Concomitant]
     Indication: MOTION SICKNESS
  5. RISEDRONATE SODIUM 35 MG [Concomitant]
  6. PREDNISOLONE 5 MG [Concomitant]
  7. AMITRIPTYLINE 10 MG [Concomitant]
  8. THYROXIN [Concomitant]
  9. ACYCLOVIR 400 MG [Concomitant]
     Indication: ANTIVIRAL PROPHYLAXIS
     Dosage: 2 DOSAGE FORMS DAILY; ONE AT BREAKFAST AND ONE AT BED TIME
  10. DAPSONE 50 MG [Concomitant]
  11. ALLOPURINOL [Concomitant]
     Dosage: 1 DOSAGE FORMS DAILY; AT BREAKFAST
  12. CAMPATH [Concomitant]
     Indication: CHRONIC LYMPHOCYTIC LEUKAEMIA
     Route: 042
     Dates: start: 201001
  13. CANDESARTAN 2 MG [Concomitant]
     Indication: BLOOD PRESSURE
  14. MONOCLONAL ANTIBODIES [Concomitant]
     Indication: CHRONIC LYMPHOCYTIC LEUKAEMIA
     Dates: start: 2009
  15. FLUCONAZOLE 50 MG [Concomitant]
     Indication: CANDIDA INFECTION
     Dosage: 2 DOSAGE FORMS DAILY; AT BREAKFAST
  16. FLUDARA [Concomitant]
     Indication: CHRONIC LYMPHOCYTIC LEUKAEMIA
     Route: 048
     Dates: start: 2001
  17. LACTULOSE [Concomitant]
     Indication: CONSTIPATION
     Dosage: 10ML
  18. METOCLOPRAMIDE 10 MG [Concomitant]
     Indication: MALAISE
     Dosage: AS REQUIRED, FOR 3 TO 5 DAYS
  19. ONDANSETRON 8 MG [Concomitant]
     Indication: MALAISE
     Dosage: 2 DOSAGE FORMS DAILY; ONE AT BREAKFAST AND ONE AT BED TIME
  20. SENNA 7.5 MG [Concomitant]
     Indication: CONSTIPATION
  21. CALCICHEW D3 FORTE [Concomitant]
  22. ATORVASTATIN 20 MG [Concomitant]
  23. RANITIDINE 300 MG [Concomitant]
  24. OMEPRAZOLE 20 MG [Concomitant]
  25. CHLORHEXIDINE [Concomitant]
     Dosage: 20 ML DAILY; DILUTED WITH WATER
  26. OILATUM [Concomitant]
  27. BENZYDAMINE HYDROCHLORIDE [Concomitant]
  28. DEXAMETHASONE [Concomitant]
  29. HYDROCORTICONE [Concomitant]
  30. PERINDOPRIL 4 MG [Concomitant]
     Indication: BLOOD PRESSURE
  31. PROPANTHELINE [Concomitant]
  32. CALCEOS [Concomitant]
  33. LEVOTHYROXINE  100 MCG [Concomitant]
     Dosage: 2 DOSAGE FORMS DAILY; AT BREAKFAST
  34. FLUDARABINE [Concomitant]
     Dates: start: 2009
  35. CYCLOPHOSPHAMIDE [Concomitant]
     Dates: start: 2009
  36. IMMUNOGLOBULIN [Concomitant]
     Indication: BLOOD PRESSURE
  37. DOXORUBICIN [Concomitant]
     Dates: start: 201007
  38. VINCRISTINE [Concomitant]
     Dates: start: 201001

REACTIONS (1)
  - Progressive multifocal leukoencephalopathy [Fatal]
